FAERS Safety Report 11444016 (Version 1)
Quarter: 2015Q3

REPORT INFORMATION
  Report Type: Spontaneous
  Country: AU (occurrence: AU)
  Receive Date: 20150901
  Receipt Date: 20150901
  Transmission Date: 20151125
  Serious: Yes (Hospitalization)
  Sender: FDA-Public Use
  Company Number: AU-AMGEN-AUSSP2015078185

PATIENT
  Age: 86 Year
  Sex: Female

DRUGS (1)
  1. ARANESP [Suspect]
     Active Substance: DARBEPOETIN ALFA
     Indication: CHRONIC KIDNEY DISEASE
     Dosage: 40 MUG, Q3WK
     Route: 058

REACTIONS (5)
  - Drug dose omission [Recovered/Resolved]
  - Device issue [Unknown]
  - Injection site bruising [Recovered/Resolved]
  - Underdose [Unknown]
  - Unevaluable event [Unknown]

NARRATIVE: CASE EVENT DATE: 20150730
